FAERS Safety Report 13993006 (Version 2)
Quarter: 2017Q4

REPORT INFORMATION
  Report Type: Spontaneous
  Country: US (occurrence: US)
  Receive Date: 20170920
  Receipt Date: 20171010
  Transmission Date: 20180321
  Serious: Yes (Death, Hospitalization, Other)
  Sender: FDA-Public Use
  Company Number: US-PFIZER INC-2017401891

PATIENT
  Age: 77 Year
  Sex: Male

DRUGS (4)
  1. SODIUM BICARBONATE. [Suspect]
     Active Substance: SODIUM BICARBONATE
     Dosage: UNK
  2. NEUT [Suspect]
     Active Substance: SODIUM BICARBONATE
     Dosage: UNK
  3. POTASSIUM PHOSPHATES [Suspect]
     Active Substance: POTASSIUM PHOSPHATE, DIBASIC\POTASSIUM PHOSPHATE, MONOBASIC
     Dosage: UNK
  4. QUELICIN [Suspect]
     Active Substance: SUCCINYLCHOLINE CHLORIDE
     Dosage: UNK

REACTIONS (20)
  - Cardiac failure [Fatal]
  - Delirium [Unknown]
  - Pneumonia [Not Recovered/Not Resolved]
  - Oedema [Unknown]
  - Asthenia [Not Recovered/Not Resolved]
  - Infection [Unknown]
  - Crying [Not Recovered/Not Resolved]
  - Renal failure [Fatal]
  - Pulmonary oedema [Unknown]
  - Gait inability [Not Recovered/Not Resolved]
  - Coronary artery disease [Fatal]
  - Atrial fibrillation [Unknown]
  - Fatigue [Not Recovered/Not Resolved]
  - Anxiety [Not Recovered/Not Resolved]
  - Product use issue [Unknown]
  - Hallucination [Unknown]
  - Dyspnoea [Not Recovered/Not Resolved]
  - Delusion [Unknown]
  - Emotional distress [Not Recovered/Not Resolved]
  - Pain [Not Recovered/Not Resolved]

NARRATIVE: CASE EVENT DATE: 20170502
